FAERS Safety Report 5274256-X (Version None)
Quarter: 2007Q1

REPORT INFORMATION
  Report Type: 
  Country: None (occurrence: None)
  Receive Date: 20070323
  Receipt Date: 20070312
  Transmission Date: 20070707
  Serious: Yes (Life-Threatening, Hospitalization)
  Sender: FDA-Public Use
  Company Number: JP-JNJFOC-20060702910

PATIENT
  Sex: Female
  Weight: 51 kg

DRUGS (10)
  1. INFLIXIMAB [Suspect]
     Route: 042
  2. INFLIXIMAB [Suspect]
     Indication: JUVENILE ARTHRITIS
     Route: 042
  3. PREDNISOLONE [Suspect]
     Route: 048
  4. PREDNISOLONE [Suspect]
     Indication: DRUG USE FOR UNKNOWN INDICATION
     Route: 048
  5. METHOTREXATE [Suspect]
     Indication: JUVENILE ARTHRITIS
     Route: 048
  6. CYCLOSPORINE [Suspect]
     Indication: DRUG USE FOR UNKNOWN INDICATION
     Route: 048
  7. DEXAMETHASONE [Suspect]
     Indication: JUVENILE ARTHRITIS
     Route: 048
  8. ADRENAL HORMONE PREPARATIONS [Concomitant]
  9. ADRENAL HORMONE PREPARATIONS [Concomitant]
  10. CHEMOTHERAPEUTICS [Concomitant]
     Indication: INFECTION PROPHYLAXIS

REACTIONS (1)
  - LISTERIA ENCEPHALITIS [None]
